FAERS Safety Report 24305629 (Version 2)
Quarter: 2024Q4

REPORT INFORMATION
  Report Type: Spontaneous
  Country: FR (occurrence: FR)
  Receive Date: 20240911
  Receipt Date: 20241114
  Transmission Date: 20250114
  Serious: Yes (Other)
  Sender: ALEXION PHARMACEUTICALS
  Company Number: 2024A136956

PATIENT

DRUGS (1)
  1. SYMBICORT [Suspect]
     Active Substance: BUDESONIDE\FORMOTEROL FUMARATE DIHYDRATE
     Indication: Bronchitis
     Dosage: 400 UG; TWO TIMES A DAY

REACTIONS (5)
  - Asthmatic crisis [Not Recovered/Not Resolved]
  - Off label use [Unknown]
  - Device ineffective [Unknown]
  - Device malfunction [Unknown]
  - Device use issue [Unknown]
